FAERS Safety Report 8989240 (Version 1)
Quarter: 2012Q4

REPORT INFORMATION
  Report Type: 
  Country: GB (occurrence: GB)
  Receive Date: 20121227
  Receipt Date: 20121227
  Transmission Date: 20130627
  Serious: Yes (Other)
  Sender: FDA-Public Use
  Company Number: GB-MYLANLABS-2012S1025947

PATIENT
  Age: 35 Year
  Sex: Female

DRUGS (4)
  1. GABAPENTIN [Suspect]
     Indication: BACK PAIN
     Dates: start: 20120929, end: 20121010
  2. QUETIAPINE [Suspect]
     Indication: INSOMNIA
     Dates: start: 2007
  3. VENLAFAXINE [Suspect]
     Indication: AFFECTIVE DISORDER
     Dates: start: 2007
  4. VITAMIN B6 [Suspect]
     Indication: PRODUCT USED FOR UNKNOWN INDICATION
     Dates: start: 20121010, end: 20121101

REACTIONS (5)
  - Mood altered [Recovering/Resolving]
  - Headache [Recovering/Resolving]
  - Irritability [Recovering/Resolving]
  - Menstruation delayed [Recovering/Resolving]
  - Mood swings [Recovering/Resolving]
